FAERS Safety Report 15792638 (Version 2)
Quarter: 2019Q1

REPORT INFORMATION
  Report Type: Spontaneous
  Country: DE (occurrence: DE)
  Receive Date: 20190107
  Receipt Date: 20190213
  Transmission Date: 20190417
  Serious: Yes (Hospitalization, Other)
  Sender: FDA-Public Use
  Company Number: DE-CONCORDIA PHARMACEUTICALS INC.-GSH201901-000024

PATIENT
  Sex: Male
  Weight: 97.7 kg

DRUGS (8)
  1. FORMOTOP [Concomitant]
     Active Substance: FORMOTEROL FUMARATE
     Dates: end: 20181123
  2. ALFUZOSIN 10 MG [Suspect]
     Active Substance: ALFUZOSIN
     Indication: DYSURIA
     Route: 065
     Dates: start: 20180913, end: 20181220
  3. SPIRIVA [Concomitant]
     Active Substance: TIOTROPIUM BROMIDE MONOHYDRATE
     Dates: start: 201601
  4. SALBUTAMOL [Concomitant]
     Active Substance: ALBUTEROL
  5. ISOPTIN [Concomitant]
     Active Substance: VERAPAMIL HYDROCHLORIDE
     Indication: HYPERTENSION
     Dates: start: 20181126, end: 20181208
  6. ALFUZOSIN 10 MG [Suspect]
     Active Substance: ALFUZOSIN
     Route: 065
     Dates: start: 20181221
  7. VALSARTAN. [Concomitant]
     Active Substance: VALSARTAN
     Indication: HYPERTENSION
     Dates: end: 20181126
  8. RAMIPRIL. [Concomitant]
     Active Substance: RAMIPRIL
     Indication: PRODUCT USED FOR UNKNOWN INDICATION

REACTIONS (15)
  - Concussion [Unknown]
  - Back pain [Unknown]
  - Fatigue [Unknown]
  - Dizziness [Unknown]
  - Constipation [Unknown]
  - Tachycardia [Not Recovered/Not Resolved]
  - Palpitations [Unknown]
  - Angina pectoris [Unknown]
  - Dyspnoea [Unknown]
  - Headache [Unknown]
  - Fall [Unknown]
  - Atrial fibrillation [Unknown]
  - Somnolence [Unknown]
  - Abdominal pain [Unknown]
  - Dysuria [Unknown]

NARRATIVE: CASE EVENT DATE: 2018
